FAERS Safety Report 6478827-4 (Version None)
Quarter: 2009Q4

REPORT INFORMATION
  Report Type: 
  Country: None (occurrence: None)
  Receive Date: 20091202
  Receipt Date: 20091118
  Transmission Date: 20100525
  Serious: Yes (Hospitalization)
  Sender: FDA-Public Use
  Company Number: GB-DEXPHARM-20091996

PATIENT
  Age: 64 Year
  Sex: Male

DRUGS (1)
  1. CHLORAPREP [Suspect]
     Indication: SEPSIS
     Dosage: 1 DF TOPICAL
     Route: 061

REACTIONS (4)
  - APPLICATION SITE DERMATITIS [None]
  - APPLICATION SITE ERYTHEMA [None]
  - APPLICATION SITE INFLAMMATION [None]
  - DEVICE RELATED SEPSIS [None]
